FAERS Safety Report 19206001 (Version 1)
Quarter: 2021Q2

REPORT INFORMATION
  Report Type: Spontaneous
  Country: US (occurrence: US)
  Receive Date: 20210503
  Receipt Date: 20210503
  Transmission Date: 20210717
  Serious: Yes (Death)
  Sender: FDA-Public Use
  Company Number: None

PATIENT
  Age: 89 Year
  Sex: Male

DRUGS (8)
  1. ABIRATERONE. [Suspect]
     Active Substance: ABIRATERONE ACETATE
     Indication: NEOPLASM MALIGNANT
     Route: 048
     Dates: start: 20200210, end: 20210428
  2. BISACODYL. [Concomitant]
     Active Substance: BISACODYL
     Dates: start: 20210425, end: 20210425
  3. PREDNISONE. [Concomitant]
     Active Substance: PREDNISONE
     Dates: start: 20200210, end: 20210428
  4. ALPRAZOLAM 0.25 MG [Concomitant]
     Active Substance: ALPRAZOLAM
     Dates: start: 20210425, end: 20210425
  5. CEFTRIAXONE. [Concomitant]
     Active Substance: CEFTRIAXONE
     Dates: start: 20210425, end: 20210425
  6. ACETAMINOPHEN. [Concomitant]
     Active Substance: ACETAMINOPHEN
     Dates: start: 20210415, end: 20210415
  7. HUMALOG [Concomitant]
     Active Substance: INSULIN LISPRO
     Dates: start: 20210415, end: 20210415
  8. CEPHALEXIN. [Concomitant]
     Active Substance: CEPHALEXIN
     Dates: start: 20210423, end: 20210423

REACTIONS (1)
  - Death [None]

NARRATIVE: CASE EVENT DATE: 20210428
